FAERS Safety Report 13713565 (Version 1)
Quarter: 2017Q3

REPORT INFORMATION
  Report Type: Other
  Country: CA (occurrence: CA)
  Receive Date: 20170704
  Receipt Date: 20170704
  Transmission Date: 20171127
  Serious: Yes (Other)
  Sender: FDA-Public Use
  Company Number: CA-APOTEX-2017AP013618

PATIENT
  Age: 82 Year
  Sex: Female

DRUGS (5)
  1. FLURAZEPAM HYDROCHLORIDE. [Concomitant]
     Active Substance: FLURAZEPAM HYDROCHLORIDE
     Indication: PRODUCT USED FOR UNKNOWN INDICATION
     Route: 065
  2. APO-QUETIAPINE [Suspect]
     Active Substance: QUETIAPINE
     Indication: ANXIETY
  3. TRAZODONE [Concomitant]
     Active Substance: TRAZODONE HYDROCHLORIDE
     Indication: PRODUCT USED FOR UNKNOWN INDICATION
     Route: 065
  4. APO-QUETIAPINE [Suspect]
     Active Substance: QUETIAPINE
     Indication: SLEEP DISORDER
     Dosage: 0.5 DF, BID
     Route: 048
  5. XANAX [Concomitant]
     Active Substance: ALPRAZOLAM
     Indication: PRODUCT USED FOR UNKNOWN INDICATION
     Route: 065

REACTIONS (6)
  - Hallucination, visual [Unknown]
  - Insomnia [Unknown]
  - Disturbance in attention [Unknown]
  - Decreased appetite [Unknown]
  - Pruritus [Unknown]
  - Tremor [Unknown]
